FAERS Safety Report 7418624-6 (Version None)
Quarter: 2011Q2

REPORT INFORMATION
  Report Type: 
  Country: None (occurrence: None)
  Receive Date: 20110415
  Receipt Date: 20101029
  Transmission Date: 20111010
  Serious: Yes (Hospitalization)
  Sender: FDA-Public Use
  Company Number: US-BAYER-201029557NA

PATIENT
  Age: 21 Year
  Sex: Female
  Weight: 100 kg

DRUGS (5)
  1. YASMIN [Suspect]
     Indication: CONTRACEPTION
     Dosage: APPROX.4 MONTHS OF SAMPLES IN OCT. 2004
     Route: 048
     Dates: start: 20041001, end: 20050214
  2. SINGULAIR [Concomitant]
  3. ADVAIR HFA [Concomitant]
  4. PROVENTIL [Concomitant]
  5. ALBUTEROL [Concomitant]

REACTIONS (3)
  - DEEP VEIN THROMBOSIS [None]
  - PAIN IN EXTREMITY [None]
  - MENTAL DISORDER [None]
